FAERS Safety Report 4466199-6 (Version None)
Quarter: 2004Q4

REPORT INFORMATION
  Report Type: 
  Country: None (occurrence: None)
  Receive Date: 20041005
  Receipt Date: 20040929
  Transmission Date: 20050328
  Serious: Yes (Death, Hospitalization)
  Sender: FDA-Public Use
  Company Number: US-JNJFOC-20040405977

PATIENT
  Sex: Female
  Weight: 53.52 kg

DRUGS (10)
  1. REMINYL [Suspect]
     Indication: DEMENTIA
     Route: 049
  2. ENALAPRIL MALEATE [Concomitant]
     Indication: HYPERTENSION
     Route: 049
  3. HALDOL [Concomitant]
     Indication: AGITATION
     Route: 049
     Dates: start: 20031211
  4. ATIVAN [Concomitant]
     Indication: AGITATION
     Dosage: 0.25MG -0.5MG EVERY DAY OR TWICE A DAY
     Route: 049
     Dates: start: 20030820
  5. ZYPREXA [Concomitant]
     Indication: AGITATION
     Route: 049
     Dates: start: 20031211
  6. FOSAMAX [Concomitant]
     Indication: OSTEOPOROSIS
     Route: 049
  7. CALAN [Concomitant]
     Indication: HYPERTENSION
     Route: 049
  8. COUMADIN [Concomitant]
     Indication: CEREBROVASCULAR ACCIDENT
     Dosage: 1MG TO 2MG
     Route: 049
  9. LEXAPRO [Concomitant]
     Indication: AGITATION
     Route: 049
  10. LEXAPRO [Concomitant]
     Indication: ANXIETY
     Route: 049

REACTIONS (10)
  - CARDIAC FAILURE CONGESTIVE [None]
  - CARDIO-RESPIRATORY ARREST [None]
  - CHRONIC OBSTRUCTIVE AIRWAYS DISEASE [None]
  - HYPOXIA [None]
  - INTERNATIONAL NORMALISED RATIO INCREASED [None]
  - MARKEDLY REDUCED DIETARY INTAKE [None]
  - METABOLIC ALKALOSIS [None]
  - PLEURAL EFFUSION [None]
  - SEDATION [None]
  - VENOUS PRESSURE JUGULAR INCREASED [None]
